FAERS Safety Report 24319144 (Version 2)
Quarter: 2024Q4

REPORT INFORMATION
  Report Type: Spontaneous
  Country: US (occurrence: US)
  Receive Date: 20240913
  Receipt Date: 20241017
  Transmission Date: 20250115
  Serious: Yes (Hospitalization)
  Sender: BIOMARIN
  Company Number: US-BIOMARINAP-US-2024-160508

PATIENT

DRUGS (1)
  1. VIMIZIM [Suspect]
     Active Substance: ELOSULFASE ALFA
     Indication: Mucopolysaccharidosis IV
     Dosage: 60 MILLIGRAM, QW
     Route: 042
     Dates: start: 201509

REACTIONS (5)
  - Spinal cord compression [Unknown]
  - Neuralgia [Unknown]
  - Secondary hypertension [Unknown]
  - Heart rate increased [Unknown]
  - Back pain [Unknown]

NARRATIVE: CASE EVENT DATE: 20240901
